FAERS Safety Report 5629958-X (Version None)
Quarter: 2008Q1

REPORT INFORMATION
  Report Type: 
  Country: None (occurrence: None)
  Receive Date: 20080213
  Receipt Date: 20080128
  Transmission Date: 20080703
  Serious: Yes (Hospitalization)
  Sender: FDA-Public Use
  Company Number: 2008JP000545

PATIENT
  Sex: Female

DRUGS (2)
  1. PROGRAF [Suspect]
     Dosage: ORAL
     Route: 048
  2. RHEUMATREX       (METHOTREXATE SODIUM) FORMULATION UNKNOWN [Concomitant]

REACTIONS (2)
  - PANCYTOPENIA [None]
  - RENAL DISORDER [None]
